FAERS Safety Report 17612993 (Version 3)
Quarter: 2020Q2

REPORT INFORMATION
  Report Type: Spontaneous
  Country: BR (occurrence: BR)
  Receive Date: 20200401
  Receipt Date: 20200422
  Transmission Date: 20200713
  Serious: Yes (Hospitalization)
  Sender: FDA-Public Use
  Company Number: BR-ANIPHARMA-2020-BR-000017

PATIENT
  Age: 54 Year
  Sex: Male

DRUGS (5)
  1. BEZAFIBRATE [Concomitant]
     Active Substance: BEZAFIBRATE
     Route: 065
  2. PANTOPRAZOLE [Concomitant]
     Active Substance: PANTOPRAZOLE
     Route: 065
  3. BRILINTA [Suspect]
     Active Substance: TICAGRELOR
     Dosage: 180 MG UNK
     Route: 048
     Dates: start: 20200318, end: 20200322
  4. ATACAND HCT [Suspect]
     Active Substance: CANDESARTAN CILEXETIL\HYDROCHLOROTHIAZIDE
     Indication: BLOOD PRESSURE ABNORMAL
     Dosage: 12.5/16 MG, DAILY
     Route: 048
     Dates: start: 2014
  5. AAS [Concomitant]
     Active Substance: ASPIRIN
     Route: 065

REACTIONS (5)
  - Pain [Recovered/Resolved]
  - Myocardial infarction [Recovered/Resolved]
  - Gingival bleeding [Unknown]
  - Coronary artery occlusion [Unknown]
  - Dyspnoea [Recovered/Resolved]

NARRATIVE: CASE EVENT DATE: 20200314
